FAERS Safety Report 16558947 (Version 2)
Quarter: 2019Q3

REPORT INFORMATION
  Report Type: Spontaneous
  Country: PR (occurrence: PR)
  Receive Date: 20190711
  Receipt Date: 20190715
  Transmission Date: 20191004
  Serious: No
  Sender: FDA-Public Use
  Company Number: PR-PFIZER INC-2019285034

PATIENT
  Age: 65 Year
  Sex: Female
  Weight: 78.46 kg

DRUGS (2)
  1. XELJANZ [Suspect]
     Active Substance: TOFACITINIB CITRATE
     Indication: PSORIATIC ARTHROPATHY
     Dosage: 1 DF, 2X/DAY
     Route: 048
     Dates: start: 20190624
  2. XELJANZ XR [Suspect]
     Active Substance: TOFACITINIB CITRATE
     Dosage: UNK

REACTIONS (3)
  - Urinary tract infection [Unknown]
  - Attention deficit/hyperactivity disorder [Unknown]
  - Memory impairment [Unknown]
